FAERS Safety Report 16830315 (Version 1)
Quarter: 2019Q3

REPORT INFORMATION
  Report Type: Spontaneous
  Country: US (occurrence: US)
  Receive Date: 20190920
  Receipt Date: 20190920
  Transmission Date: 20191005
  Serious: No
  Sender: FDA-Public Use
  Company Number: US-BIOGEN-2019BI00787110

PATIENT
  Sex: Male

DRUGS (1)
  1. TYSABRI [Suspect]
     Active Substance: NATALIZUMAB
     Indication: MULTIPLE SCLEROSIS
     Route: 042
     Dates: start: 20190916

REACTIONS (6)
  - Incorrect product administration duration [Unknown]
  - Thirst [Unknown]
  - Glossitis [Unknown]
  - Candida infection [Unknown]
  - Throat irritation [Unknown]
  - Abdominal discomfort [Unknown]
